FAERS Safety Report 21459775 (Version 1)
Quarter: 2022Q4

REPORT INFORMATION
  Report Type: Spontaneous
  Country: US (occurrence: US)
  Receive Date: 20221014
  Receipt Date: 20221014
  Transmission Date: 20230112
  Serious: No
  Sender: FDA-Public Use
  Company Number: US-SUNOVION-2022SUN002891AA

PATIENT
  Sex: Female

DRUGS (2)
  1. LUNESTA [Suspect]
     Active Substance: ESZOPICLONE
     Dosage: 3 MG
     Route: 048
  2. ESZOPICLONE [Suspect]
     Active Substance: ESZOPICLONE
     Dosage: UNKNOWN

REACTIONS (6)
  - Frustration tolerance decreased [Unknown]
  - Mood altered [Unknown]
  - Decreased activity [Unknown]
  - Drug ineffective [Unknown]
  - Insomnia [Unknown]
  - Therapy interrupted [Unknown]
